FAERS Safety Report 4578441-1 (Version None)
Quarter: 2005Q1

REPORT INFORMATION
  Report Type: 
  Country: None (occurrence: None)
  Receive Date: 20050203
  Receipt Date: 20050203
  Transmission Date: 20050727
  Serious: Yes (Hospitalization)
  Sender: FDA-Public Use
  Company Number: None

PATIENT
  Age: 51 Year
  Sex: Male
  Weight: 112.7 kg

DRUGS (10)
  1. CLONAZEPAM [Suspect]
     Indication: SLEEP DISORDER
     Dosage: 2MG P.O. HS MR X 1
     Route: 048
     Dates: start: 20050118, end: 20050125
  2. SIMVASTATIN [Concomitant]
  3. CITALOPRAM HYDROBROMIDE [Concomitant]
  4. FUROSEMIDE [Concomitant]
  5. RISPERIDONE [Concomitant]
  6. GABAPENTIN [Concomitant]
  7. TEMAZEPAM [Concomitant]
  8. OMEPRAZOLE [Concomitant]
  9. LEVETIRACETAM [Concomitant]
  10. IBUPROFEN [Concomitant]

REACTIONS (1)
  - LETHARGY [None]
